FAERS Safety Report 5420768-5 (Version None)
Quarter: 2007Q3

REPORT INFORMATION
  Report Type: 
  Country: None (occurrence: None)
  Receive Date: 20070816
  Receipt Date: 20070807
  Transmission Date: 20080115
  Serious: Yes (Death, Hospitalization, Other)
  Sender: FDA-Public Use
  Company Number: 2007SP002270

PATIENT
  Age: 32 Year
  Sex: Male

DRUGS (2)
  1. TEMODAL [Suspect]
     Indication: GLIOBLASTOMA MULTIFORME
     Dosage: PO
     Route: 048
     Dates: start: 20050501
  2. GLIADEL [Suspect]
     Indication: GLIOBLASTOMA MULTIFORME
     Dosage: 8 DF; ICB
     Route: 018
     Dates: start: 20050301

REACTIONS (8)
  - APHASIA [None]
  - COGNITIVE DISORDER [None]
  - COMA [None]
  - HEMIPARESIS [None]
  - HYDROCEPHALUS [None]
  - MENINGITIS ASEPTIC [None]
  - NEOPLASM RECURRENCE [None]
  - PROCEDURAL COMPLICATION [None]
